FAERS Safety Report 15302114 (Version 1)
Quarter: 2018Q3

REPORT INFORMATION
  Report Type: Spontaneous
  Country: CN (occurrence: CN)
  Receive Date: 20180821
  Receipt Date: 20180821
  Transmission Date: 20181010
  Serious: Yes (Death, Other)
  Sender: FDA-Public Use
  Company Number: CN-ELI_LILLY_AND_COMPANY-CN201808007694

PATIENT
  Age: 71 Year
  Sex: Male
  Weight: 82 kg

DRUGS (3)
  1. GEMCITABINE HYDROCHLORIDE. [Suspect]
     Active Substance: GEMCITABINE HYDROCHLORIDE
     Indication: NON-SMALL CELL LUNG CANCER METASTATIC
     Dosage: 1250 MG/M2, UNKNOWN
     Route: 065
     Dates: start: 20180315
  2. CISPLATIN. [Concomitant]
     Active Substance: CISPLATIN
     Indication: NON-SMALL CELL LUNG CANCER METASTATIC
     Dosage: 75 MG/M2, CYCLICAL
  3. ENDOSTAR [Concomitant]
     Active Substance: ENDOSTATIN
     Indication: NON-SMALL CELL LUNG CANCER METASTATIC
     Dosage: 15 MG, UNKNOWN
     Dates: start: 20180315

REACTIONS (10)
  - Asthenia [Unknown]
  - Anaemia [Unknown]
  - Coma [Unknown]
  - Aspartate aminotransferase increased [Unknown]
  - Cardio-respiratory arrest [Fatal]
  - Nausea [Unknown]
  - Diarrhoea [Unknown]
  - Alanine aminotransferase increased [Unknown]
  - Hypothyroidism [Unknown]
  - Hypoalbuminaemia [Unknown]

NARRATIVE: CASE EVENT DATE: 20180603
